FAERS Safety Report 19651560 (Version 1)
Quarter: 2021Q3

REPORT INFORMATION
  Report Type: Spontaneous
  Country: IN (occurrence: IN)
  Receive Date: 20210803
  Receipt Date: 20210803
  Transmission Date: 20211014
  Serious: Yes (Death, Hospitalization)
  Sender: FDA-Public Use
  Company Number: IN-MYLANLABS-2021M1048041

PATIENT
  Age: 8 Year
  Sex: Male

DRUGS (7)
  1. METHYLPREDNISOLONE. [Suspect]
     Active Substance: METHYLPREDNISOLONE
     Indication: SUBACUTE SCLEROSING PANENCEPHALITIS
     Dosage: 30 MILLIGRAM/KILOGRAM, QD
     Route: 065
  2. PHENYTOIN. [Suspect]
     Active Substance: PHENYTOIN
     Indication: SUBACUTE SCLEROSING PANENCEPHALITIS
     Route: 065
  3. ISOPRINOSINE [Suspect]
     Active Substance: INOSINE PRANOBEX
     Indication: SUBACUTE SCLEROSING PANENCEPHALITIS
     Route: 065
  4. LEVETIRACETAM. [Suspect]
     Active Substance: LEVETIRACETAM
     Indication: SUBACUTE SCLEROSING PANENCEPHALITIS
     Route: 065
  5. PHENOBARBITONE                     /00023201/ [Suspect]
     Active Substance: PHENOBARBITAL
     Indication: SUBACUTE SCLEROSING PANENCEPHALITIS
     Route: 065
  6. MANNITOL. [Suspect]
     Active Substance: MANNITOL
     Indication: SUBACUTE SCLEROSING PANENCEPHALITIS
     Route: 065
  7. MIDAZOLAM. [Suspect]
     Active Substance: MIDAZOLAM
     Indication: SUBACUTE SCLEROSING PANENCEPHALITIS
     Route: 065

REACTIONS (1)
  - Drug ineffective [Fatal]
